FAERS Safety Report 5143412-3 (Version None)
Quarter: 2006Q4

REPORT INFORMATION
  Report Type: 
  Country: None (occurrence: None)
  Receive Date: 20061101
  Receipt Date: 20061101
  Transmission Date: 20070319
  Serious: Yes (Other)
  Sender: FDA-Public Use
  Company Number: None

PATIENT
  Age: 83 Year
  Sex: Female

DRUGS (9)
  1. REVLIMID [Suspect]
     Indication: MULTIPLE MYELOMA
     Dosage: 15 MG DAILY PO
     Route: 048
     Dates: start: 20060922, end: 20060929
  2. NOVOLIN N [Concomitant]
  3. AUGMENTIN '125' [Concomitant]
  4. NEUPOGEN [Concomitant]
  5. WARFARIN SODIUM [Concomitant]
  6. COZAAR [Concomitant]
  7. LEVOTHROID [Concomitant]
  8. PROCRIT [Concomitant]
  9. LOVASTATIN [Concomitant]

REACTIONS (2)
  - BONE MARROW FAILURE [None]
  - THROMBOCYTOPENIA [None]
